FAERS Safety Report 5060370-0 (Version None)
Quarter: 2006Q3

REPORT INFORMATION
  Report Type: 
  Country: None (occurrence: None)
  Receive Date: 20060720
  Receipt Date: 20060710
  Transmission Date: 20061208
  Serious: Yes (Hospitalization)
  Sender: FDA-Public Use
  Company Number: 200610648BFR

PATIENT
  Age: 86 Year
  Sex: Female
  Weight: 40 kg

DRUGS (8)
  1. MOXIFLOXACIN HYDROCHLORIDE [Suspect]
     Indication: PATHOGEN RESISTANCE
     Dosage: 400 MG, QD, ORAL
     Route: 048
     Dates: start: 20050712, end: 20060221
  2. MOXIFLOXACIN HYDROCHLORIDE [Suspect]
     Indication: PULMONARY TUBERCULOSIS
     Dosage: 400 MG, QD, ORAL
     Route: 048
     Dates: start: 20050712, end: 20060221
  3. MYAMBUTOL [Suspect]
     Indication: PATHOGEN RESISTANCE
     Dosage: 800 MG, TOTAL DAILY, ORAL
     Route: 048
     Dates: start: 20050712, end: 20060112
  4. MYAMBUTOL [Suspect]
     Indication: PULMONARY TUBERCULOSIS
     Dosage: 800 MG, TOTAL DAILY, ORAL
     Route: 048
     Dates: start: 20050712, end: 20060112
  5. NOVONORM [Concomitant]
  6. SEROPRAM [Concomitant]
  7. ASPIRIN [Concomitant]
  8. PIRILENE [Concomitant]

REACTIONS (1)
  - OPTIC NEURITIS RETROBULBAR [None]
